FAERS Safety Report 14425372 (Version 1)
Quarter: 2018Q1

REPORT INFORMATION
  Report Type: Spontaneous
  Country: US (occurrence: US)
  Receive Date: 20180123
  Receipt Date: 20180123
  Transmission Date: 20180509
  Serious: No
  Sender: FDA-Public Use
  Company Number: US-PERRIGO-17US000374

PATIENT
  Sex: Female

DRUGS (1)
  1. IBUPROFEN. [Suspect]
     Active Substance: IBUPROFEN
     Indication: VIRAL UPPER RESPIRATORY TRACT INFECTION
     Dosage: UNKNOWN, UNKNOWN
     Route: 048
     Dates: start: 201701

REACTIONS (5)
  - Eye pain [Unknown]
  - Musculoskeletal pain [Unknown]
  - Feeling abnormal [Unknown]
  - Drug administered to patient of inappropriate age [Unknown]
  - Insomnia [Unknown]

NARRATIVE: CASE EVENT DATE: 201701
